FAERS Safety Report 10486510 (Version 2)
Quarter: 2014Q4

REPORT INFORMATION
  Report Type: Spontaneous
  Country: SZ (occurrence: None)
  Receive Date: 20140929
  Receipt Date: 20141015
  Transmission Date: 20150528
  Serious: Yes (Hospitalization)
  Sender: FDA-Public Use
  Company Number: 20140617

PATIENT
  Age: 76 Year
  Sex: Male

DRUGS (1)
  1. FERINJECT [Suspect]
     Active Substance: FERRIC CARBOXYMALTOSE
     Indication: PRODUCT USED FOR UNKNOWN INDICATION
     Dosage: 500 MG IN 100 ML NAC1
     Route: 041
     Dates: start: 20140624, end: 20140624

REACTIONS (14)
  - Vomiting [None]
  - Hypotension [None]
  - Oedema mouth [None]
  - Lip swelling [None]
  - Abdominal pain upper [None]
  - Blood creatinine increased [None]
  - Migraine [None]
  - Visual impairment [None]
  - Cough [None]
  - Chills [None]
  - Back pain [None]
  - Diarrhoea [None]
  - Headache [None]
  - Dyspnoea [None]

NARRATIVE: CASE EVENT DATE: 20140624
